FAERS Safety Report 24742120 (Version 4)
Quarter: 2025Q3

REPORT INFORMATION
  Report Type: Spontaneous
  Country: JP (occurrence: JP)
  Receive Date: 20241217
  Receipt Date: 20250810
  Transmission Date: 20251021
  Serious: Yes (Other)
  Sender: ALEXION PHARMACEUTICALS
  Company Number: JP-ASTRAZENECA-240140369_012620_P_1

PATIENT
  Age: 75 Year
  Sex: Female

DRUGS (9)
  1. TRUQAP [Suspect]
     Active Substance: CAPIVASERTIB
     Indication: Breast cancer
     Dosage: NUMBER OF SEPARATE DOSAGES UNKNOWN, DOSING 4 DAYS IN A ROW FOLLOWED BY 3 DAYS OFF
  2. TRUQAP [Suspect]
     Active Substance: CAPIVASERTIB
  3. TRUQAP [Suspect]
     Active Substance: CAPIVASERTIB
  4. TRUQAP [Suspect]
     Active Substance: CAPIVASERTIB
  5. FULVESTRANT [Suspect]
     Active Substance: FULVESTRANT
     Indication: Breast cancer
  6. FULVESTRANT [Suspect]
     Active Substance: FULVESTRANT
  7. FULVESTRANT [Suspect]
     Active Substance: FULVESTRANT
  8. FULVESTRANT [Suspect]
     Active Substance: FULVESTRANT
  9. Anti Diabetic [Concomitant]
     Route: 065

REACTIONS (3)
  - Diabetes mellitus [Not Recovered/Not Resolved]
  - Sepsis [Not Recovered/Not Resolved]
  - Infected skin ulcer [Not Recovered/Not Resolved]
